FAERS Safety Report 25998835 (Version 1)
Quarter: 2025Q4

REPORT INFORMATION
  Report Type: Spontaneous
  Country: GB (occurrence: GB)
  Receive Date: 20251105
  Receipt Date: 20251105
  Transmission Date: 20260117
  Serious: Yes (Other)
  Sender: TEVA
  Company Number: GB-MHRA-TPP626003C9916639YC1761651270815

PATIENT
  Age: 51 Year
  Sex: Female
  Weight: 66 kg

DRUGS (3)
  1. NAPROXEN [Suspect]
     Active Substance: NAPROXEN
     Indication: Ill-defined disorder
     Route: 065
     Dates: start: 20251028
  2. CIMETIDINE [Concomitant]
     Active Substance: CIMETIDINE
     Indication: Ill-defined disorder
     Dosage: AT NIGHT
     Dates: start: 20240611
  3. VAGIRUX [Concomitant]
     Indication: Ill-defined disorder
     Dosage: INSERT ONE PESSARY VAGINALLY DAILY FOR 2 WEEKS ...
     Dates: start: 20231120

REACTIONS (2)
  - Lip swelling [Recovered/Resolved]
  - Swelling face [Recovered/Resolved]

NARRATIVE: CASE EVENT DATE: 20251028
